FAERS Safety Report 5404270-2 (Version None)
Quarter: 2007Q3

REPORT INFORMATION
  Report Type: 
  Country: None (occurrence: None)
  Receive Date: 20070802
  Receipt Date: 20070724
  Transmission Date: 20080115
  Serious: Yes (Hospitalization, Other)
  Sender: FDA-Public Use
  Company Number: PL-AMGEN-UK232619

PATIENT
  Sex: Male

DRUGS (2)
  1. PANITUMUMAB [Suspect]
     Indication: COLORECTAL CANCER
     Route: 042
     Dates: start: 20061207, end: 20070608
  2. IRON [Concomitant]
     Route: 048
     Dates: start: 20070608

REACTIONS (1)
  - PNEUMONIA [None]
